FAERS Safety Report 9773089 (Version 1)
Quarter: 2013Q4

REPORT INFORMATION
  Report Type: Spontaneous
  Country: FR (occurrence: FR)
  Receive Date: 20131219
  Receipt Date: 20131219
  Transmission Date: 20140711
  Serious: Yes (Hospitalization, Other)
  Sender: FDA-Public Use
  Company Number: FR-OTSUKA-US-2013-12207

PATIENT
  Sex: 0

DRUGS (3)
  1. BUSULFEX [Suspect]
     Indication: TRANSPLANT
     Dosage: 6 MG/ML, UNK
     Dates: start: 20121214, end: 20121215
  2. FLUDARABINE PHOSPHATE [Suspect]
     Indication: TRANSPLANT
     Dosage: UNK
     Dates: start: 20121213, end: 20121217
  3. METHOTREXATE [Suspect]
     Indication: PRODUCT USED FOR UNKNOWN INDICATION
     Dosage: UNK
     Dates: start: 20121219, end: 20121224

REACTIONS (3)
  - Leukoencephalopathy [Recovered/Resolved with Sequelae]
  - Depression [Unknown]
  - Acute graft versus host disease in intestine [Unknown]
